FAERS Safety Report 24056309 (Version 1)
Quarter: 2024Q3

REPORT INFORMATION
  Report Type: Other
  Country: US (occurrence: US)
  Receive Date: 20240705
  Receipt Date: 20240705
  Transmission Date: 20241016
  Serious: Yes (Death)
  Sender: UROVANT SCIENCES
  Company Number: US-UROVANT SCIENCES GMBH-202406-URV-000919

PATIENT
  Sex: Female

DRUGS (1)
  1. GEMTESA [Suspect]
     Active Substance: VIBEGRON
     Indication: Product used for unknown indication
     Dosage: 1 TAB, QD
     Route: 065

REACTIONS (1)
  - Death [Fatal]
